FAERS Safety Report 4730204-X (Version None)
Quarter: 2005Q3

REPORT INFORMATION
  Report Type: 
  Country: None (occurrence: None)
  Receive Date: 20050801
  Receipt Date: 20050728
  Transmission Date: 20060218
  Serious: Yes (Hospitalization)
  Sender: FDA-Public Use
  Company Number: NBX050016

PATIENT
  Age: 58 Year
  Sex: Female

DRUGS (5)
  1. NABUCOX [Suspect]
     Indication: OSTEOARTHRITIS
     Dosage: 2G PER DAY
     Route: 048
     Dates: start: 20050208, end: 20050217
  2. DICLOFENAC SODIUM [Concomitant]
     Dates: start: 20050217
  3. CELECOXIB [Concomitant]
     Indication: OSTEOARTHRITIS
     Dosage: 200MG PER DAY
     Dates: start: 20050201, end: 20050208
  4. CYCLO 3 FORT [Concomitant]
     Dosage: 400MG TWICE PER DAY
     Dates: end: 20050217
  5. ART 50 [Concomitant]
     Dosage: 50MG TWICE PER DAY
     Route: 048
     Dates: start: 20050217

REACTIONS (4)
  - EOSINOPHILIA [None]
  - PYREXIA [None]
  - RASH MACULO-PAPULAR [None]
  - TOXIC SKIN ERUPTION [None]
